FAERS Safety Report 8045610-8 (Version None)
Quarter: 2012Q1

REPORT INFORMATION
  Report Type: 
  Country: None (occurrence: None)
  Receive Date: 20120113
  Receipt Date: 20120103
  Transmission Date: 20120608
  Serious: Yes (Hospitalization)
  Sender: FDA-Public Use
  Company Number: US-MERCK-1201USA00355

PATIENT
  Age: 57 Year
  Sex: Male

DRUGS (1)
  1. FOSAMAX [Suspect]
     Indication: PROPHYLAXIS
     Route: 048
     Dates: start: 19980101, end: 20020101

REACTIONS (2)
  - HIP FRACTURE [None]
  - FEMUR FRACTURE [None]
